FAERS Safety Report 24457117 (Version 3)
Quarter: 2024Q4

REPORT INFORMATION
  Report Type: Report from Study
  Country: US (occurrence: US)
  Receive Date: 20241018
  Receipt Date: 20241122
  Transmission Date: 20250115
  Serious: No
  Sender: MIRUM PHARMACEUTICALS
  Company Number: US-MIRUM PHARMACEUTICALS, INC.-US-MIR-24-00897

PATIENT
  Sex: Female
  Weight: 60 kg

DRUGS (1)
  1. LIVMARLI [Suspect]
     Active Substance: MARALIXIBAT CHLORIDE
     Indication: Cholestasis
     Dosage: 1 MILLILITER, BID
     Route: 048
     Dates: start: 20240605

REACTIONS (8)
  - Pruritus [Unknown]
  - Steatorrhoea [Unknown]
  - Bile acids increased [Recovered/Resolved]
  - Hypovitaminosis [Unknown]
  - Vitamin K deficiency [Unknown]
  - Exposure during pregnancy [Unknown]
  - Drug ineffective [Unknown]
  - Off label use [Unknown]

NARRATIVE: CASE EVENT DATE: 20240101
